FAERS Safety Report 7875818-3 (Version None)
Quarter: 2011Q4

REPORT INFORMATION
  Report Type: 
  Country: None (occurrence: None)
  Receive Date: 20111031
  Receipt Date: 20111018
  Transmission Date: 20120403
  Serious: Yes (Other)
  Sender: FDA-Public Use
  Company Number: PHFR2011GB05965

PATIENT
  Sex: Male

DRUGS (1)
  1. CLOZARIL [Suspect]
     Indication: PSYCHOTIC DISORDER
     Dosage: 12.5 MG
     Route: 048
     Dates: start: 20111017

REACTIONS (3)
  - SEDATION [None]
  - FEELING ABNORMAL [None]
  - GAIT DISTURBANCE [None]
